FAERS Safety Report 17002514 (Version 1)
Quarter: 2019Q4

REPORT INFORMATION
  Report Type: Report from Study
  Country: None (occurrence: US)
  Receive Date: 20191107
  Receipt Date: 20191107
  Transmission Date: 20200122
  Serious: Yes (Hospitalization)
  Sender: FDA-Public Use
  Company Number: US-ABBVIE-19K-163-2988180-00

PATIENT
  Age: 64 Year
  Sex: Male

DRUGS (1)
  1. HUMIRA [Suspect]
     Active Substance: ADALIMUMAB
     Indication: PRODUCT USED FOR UNKNOWN INDICATION
     Route: 058
     Dates: start: 2017

REACTIONS (6)
  - Traumatic intracranial haemorrhage [Unknown]
  - Gait inability [Unknown]
  - Arthralgia [Recovered/Resolved]
  - Rash pruritic [Not Recovered/Not Resolved]
  - Loss of consciousness [Unknown]
  - Fall [Unknown]

NARRATIVE: CASE EVENT DATE: 201908
